FAERS Safety Report 9115841 (Version 3)
Quarter: 2013Q3

REPORT INFORMATION
  Report Type: Spontaneous
  Country: US (occurrence: US)
  Receive Date: 20130225
  Receipt Date: 20130923
  Transmission Date: 20140515
  Serious: Yes (Other)
  Sender: FDA-Public Use
  Company Number: US-GLAXOSMITHKLINE-A0990057A

PATIENT
  Age: 50 Year
  Sex: Female

DRUGS (3)
  1. FLOLAN [Suspect]
     Indication: PULMONARY ARTERIAL HYPERTENSION
     Dosage: 40.85NGKM CONTINUOUS
     Route: 042
     Dates: start: 20071211
  2. COUMADIN [Concomitant]
  3. REVATIO [Concomitant]

REACTIONS (4)
  - Device related infection [Unknown]
  - Pain in extremity [Unknown]
  - Furuncle [Not Recovered/Not Resolved]
  - Catheter site pain [Recovering/Resolving]
